FAERS Safety Report 18376816 (Version 1)
Quarter: 2020Q4

REPORT INFORMATION
  Report Type: Spontaneous
  Country: US (occurrence: US)
  Receive Date: 20201012
  Receipt Date: 20201012
  Transmission Date: 20210114
  Serious: Yes (Disabling)
  Sender: FDA-Public Use
  Company Number: None

PATIENT
  Age: 83 Year
  Sex: Female
  Weight: 63.9 kg

DRUGS (8)
  1. TYLENOL [Concomitant]
     Active Substance: ACETAMINOPHEN
  2. SYMBICORT [Concomitant]
     Active Substance: BUDESONIDE\FORMOTEROL FUMARATE DIHYDRATE
  3. PRALUENT [Suspect]
     Active Substance: ALIROCUMAB
     Indication: BLOOD CHOLESTEROL
     Dosage: ?          QUANTITY:1 INJECTION(S);OTHER FREQUENCY:EVERY 2 WEEKS;?
     Route: 058
     Dates: start: 20200504, end: 20200907
  4. BISPROPOLOL [Concomitant]
  5. CALCIUM [Concomitant]
     Active Substance: CALCIUM
  6. TYLENOL 81MG [Concomitant]
  7. VITAMIN [Concomitant]
     Active Substance: VITAMINS
  8. XOPENEX INHALER [Concomitant]

REACTIONS (9)
  - Influenza [None]
  - Illness [None]
  - Gait disturbance [None]
  - Oedema peripheral [None]
  - Constipation [None]
  - Oedema [None]
  - Limb discomfort [None]
  - Fall [None]
  - Dysuria [None]

NARRATIVE: CASE EVENT DATE: 20200601
